FAERS Safety Report 9095960 (Version 1)
Quarter: 2013Q1

REPORT INFORMATION
  Report Type: Spontaneous
  Country: US (occurrence: US)
  Receive Date: 20130204
  Receipt Date: 20130204
  Transmission Date: 20140127
  Serious: No
  Sender: FDA-Public Use
  Company Number: US-009507513-1301USA014558

PATIENT
  Age: 38 Year
  Sex: Female

DRUGS (1)
  1. NUVARING [Suspect]
     Indication: CONTRACEPTION
     Dosage: 3 WEEKS, 1 WEEK OUT
     Route: 067
     Dates: start: 20130110

REACTIONS (9)
  - Anger [Unknown]
  - Depression [Recovered/Resolved]
  - Nausea [Not Recovered/Not Resolved]
  - Drug dose omission [Unknown]
  - Metrorrhagia [Unknown]
  - Aggression [Unknown]
  - Crying [Unknown]
  - Acne [Unknown]
  - Decreased appetite [Unknown]
